FAERS Safety Report 21664491 (Version 4)
Quarter: 2023Q1

REPORT INFORMATION
  Report Type: Spontaneous
  Country: GB (occurrence: GB)
  Receive Date: 20221130
  Receipt Date: 20230329
  Transmission Date: 20230417
  Serious: Yes (Hospitalization, Other)
  Sender: FDA-Public Use
  Company Number: GB-JNJFOC-20220707742

PATIENT

DRUGS (7)
  1. FIRMAGON [Suspect]
     Active Substance: DEGARELIX ACETATE
     Indication: Prostate cancer
     Dosage: UNK, 1 TIME EVERY 1 MONTH
     Route: 065
  2. FIRMAGON [Suspect]
     Active Substance: DEGARELIX ACETATE
     Indication: Neoplasm malignant
  3. ATORVASTATIN [Suspect]
     Active Substance: ATORVASTATIN
     Indication: Product used for unknown indication
     Dosage: UNK
     Route: 065
  4. ERLEADA [Suspect]
     Active Substance: APALUTAMIDE
     Indication: Prostate cancer
     Dosage: 240 MG
     Route: 048
     Dates: start: 20220601
  5. ERLEADA [Suspect]
     Active Substance: APALUTAMIDE
     Dosage: 240 MG
     Route: 065
  6. RAMIPRIL [Suspect]
     Active Substance: RAMIPRIL
     Indication: Product used for unknown indication
     Dosage: UNK
     Route: 065
  7. TAMSULOSIN [Suspect]
     Active Substance: TAMSULOSIN
     Indication: Muscle relaxant therapy
     Dosage: UNK
     Route: 065

REACTIONS (12)
  - Bladder disorder [Not Recovered/Not Resolved]
  - Urethral obstruction [Recovered/Resolved]
  - Gastrointestinal disorder [Recovering/Resolving]
  - Restless legs syndrome [Recovering/Resolving]
  - Platelet count increased [Recovered/Resolved]
  - Raynaud^s phenomenon [Unknown]
  - Urinary tract infection [Recovered/Resolved]
  - Urinary retention [Unknown]
  - Hypoaesthesia [Not Recovered/Not Resolved]
  - Hot flush [Unknown]
  - Fatigue [Recovered/Resolved]
  - Product use in unapproved indication [Unknown]

NARRATIVE: CASE EVENT DATE: 20220601
